FAERS Safety Report 4285501-1 (Version None)
Quarter: 2004Q1

REPORT INFORMATION
  Report Type: 
  Country: None (occurrence: None)
  Receive Date: 20040202
  Receipt Date: 20040116
  Transmission Date: 20041129
  Serious: Yes (Other)
  Sender: FDA-Public Use
  Company Number: 139386

PATIENT
  Age: 50 Year
  Sex: Female
  Weight: 55.3388 kg

DRUGS (7)
  1. AVONEX [Suspect]
     Indication: MULTIPLE SCLEROSIS
     Dosage: 30 MCG QW IM
     Route: 030
     Dates: start: 19971101, end: 20030101
  2. AVONEX [Suspect]
     Indication: MULTIPLE SCLEROSIS
     Dosage: 30 MCG QW IM
     Route: 030
     Dates: start: 20030101, end: 20031101
  3. AVONEX [Suspect]
     Indication: MULTIPLE SCLEROSIS
     Dosage: 30 MCG QW IM
     Route: 030
     Dates: start: 20040115
  4. LODINE [Concomitant]
  5. TYLENOL W/ CODEINE NO. 4 [Concomitant]
  6. ALLERGY MEDICINE [Concomitant]
  7. BENADRYL [Concomitant]

REACTIONS (8)
  - ABDOMINAL PAIN [None]
  - COLITIS ISCHAEMIC [None]
  - COMPUTERISED TOMOGRAM ABNORMAL [None]
  - DECREASED APPETITE [None]
  - DIARRHOEA HAEMORRHAGIC [None]
  - MULTIPLE SCLEROSIS [None]
  - MUSCLE SPASMS [None]
  - WEIGHT DECREASED [None]
